FAERS Safety Report 18633736 (Version 1)
Quarter: 2020Q4

REPORT INFORMATION
  Report Type: Spontaneous
  Country: US (occurrence: US)
  Receive Date: 20201218
  Receipt Date: 20201218
  Transmission Date: 20210114
  Serious: Yes (Other)
  Sender: FDA-Public Use
  Company Number: US-AMGEN-USASP2020204876

PATIENT
  Age: 74 Year
  Sex: Female

DRUGS (1)
  1. PROLIA [Suspect]
     Active Substance: DENOSUMAB
     Indication: OSTEOPOROSIS POSTMENOPAUSAL
     Dosage: UNK
     Route: 065

REACTIONS (10)
  - Tooth erosion [Unknown]
  - Body height decreased [Unknown]
  - Cataract [Unknown]
  - Gingivitis [Unknown]
  - Gingival disorder [Unknown]
  - Sinusitis [Unknown]
  - Tooth fracture [Unknown]
  - Exostosis [Unknown]
  - Dental caries [Unknown]
  - Infection [Unknown]

NARRATIVE: CASE EVENT DATE: 2020
